FAERS Safety Report 7427295-4 (Version None)
Quarter: 2011Q2

REPORT INFORMATION
  Report Type: 
  Country: None (occurrence: None)
  Receive Date: 20110420
  Receipt Date: 20110415
  Transmission Date: 20111010
  Serious: No
  Sender: FDA-Public Use
  Company Number: US-PFIZER INC-2011083524

PATIENT
  Sex: Male
  Weight: 102 kg

DRUGS (1)
  1. NORVASC [Suspect]
     Indication: HYPERTENSION
     Dosage: UNK, 2X/DAY
     Route: 048
     Dates: start: 20110301, end: 20110401

REACTIONS (4)
  - OEDEMA PERIPHERAL [None]
  - SENSORY LOSS [None]
  - PAIN [None]
  - JOINT SWELLING [None]
